FAERS Safety Report 4825280-X (Version None)
Quarter: 2005Q4

REPORT INFORMATION
  Report Type: 
  Country: None (occurrence: None)
  Receive Date: 20051110
  Receipt Date: 20051110
  Transmission Date: 20060501
  Serious: Yes (Death)
  Sender: FDA-Public Use
  Company Number: None

PATIENT
  Sex: Male
  Weight: 86.1834 kg

DRUGS (2)
  1. FENTANYL [Suspect]
     Indication: DRUG WITHDRAWAL SYNDROME
     Dosage: 50 MCG/HR   1 PATCH PER 48 HRS   TRANSDERMA
     Route: 062
     Dates: start: 20051031, end: 20051102
  2. FENTANYL [Suspect]
     Indication: MYALGIA
     Dosage: 50 MCG/HR   1 PATCH PER 48 HRS   TRANSDERMA
     Route: 062
     Dates: start: 20051031, end: 20051102

REACTIONS (1)
  - INTENTIONAL OVERDOSE [None]
